FAERS Safety Report 13966769 (Version 1)
Quarter: 2017Q3

REPORT INFORMATION
  Report Type: Spontaneous
  Country: US (occurrence: US)
  Receive Date: 20170913
  Receipt Date: 20170913
  Transmission Date: 20171128
  Serious: Yes (Disabling, Other)
  Sender: FDA-Public Use
  Company Number: None

PATIENT
  Age: 52 Year
  Sex: Female
  Weight: 72.9 kg

DRUGS (5)
  1. METAMUCIL [Concomitant]
     Active Substance: PLANTAGO SEED
  2. VIMPAT [Suspect]
     Active Substance: LACOSAMIDE
     Indication: SEIZURE
     Dosage: ?          QUANTITY:1 TABLET(S);?
     Route: 048
     Dates: start: 20170526, end: 20170622
  3. LEVACITAREM [Concomitant]
  4. VIMPAT [Suspect]
     Active Substance: LACOSAMIDE
     Indication: PROPHYLAXIS
     Dosage: ?          QUANTITY:1 TABLET(S);?
     Route: 048
     Dates: start: 20170526, end: 20170622
  5. ADULT MULTI VITAMIN [Concomitant]

REACTIONS (1)
  - Motor dysfunction [None]

NARRATIVE: CASE EVENT DATE: 20170607
